FAERS Safety Report 8262125-2 (Version None)
Quarter: 2012Q2

REPORT INFORMATION
  Report Type: 
  Country: None (occurrence: None)
  Receive Date: 20120405
  Receipt Date: 20120403
  Transmission Date: 20120825
  Serious: Yes (Life-Threatening, Hospitalization, Other)
  Sender: FDA-Public Use
  Company Number: PHHY2012FR026242

PATIENT
  Sex: Female
  Weight: 70 kg

DRUGS (5)
  1. CALTRATE +D [Concomitant]
     Indication: OSTEOPOROSIS
     Dosage: 1 DF, BID
     Dates: start: 20120105
  2. IRBESARTAN [Concomitant]
     Indication: HYPERTENSION
     Dosage: 1 DF, QD
     Dates: start: 20110505
  3. ATORVASTATIN [Concomitant]
     Indication: HYPERCHOLESTEROLAEMIA
     Dosage: 10 MG, QD
     Dates: start: 20111205
  4. ZOLEDRONOC ACID [Suspect]
     Indication: OSTEOPOROSIS
     Dosage: UNK UKN, UNK
     Route: 042
     Dates: start: 20120111
  5. ROCEPHIN [Suspect]
     Indication: URINARY TRACT INFECTION
     Dosage: 1 MG, UNK
     Route: 030
     Dates: start: 20120106, end: 20120110

REACTIONS (14)
  - DYSSTASIA [None]
  - MOVEMENT DISORDER [None]
  - PERICARDIAL DISEASE [None]
  - MUSCULOSKELETAL PAIN [None]
  - SYNCOPE [None]
  - AORTIC VALVE INCOMPETENCE [None]
  - CARDIAC FAILURE [None]
  - BUNDLE BRANCH BLOCK LEFT [None]
  - HYPOTENSION [None]
  - HYPOKINESIA [None]
  - DISORIENTATION [None]
  - FALL [None]
  - ARRHYTHMIA [None]
  - ATRIOVENTRICULAR BLOCK FIRST DEGREE [None]
